FAERS Safety Report 18511545 (Version 1)
Quarter: 2020Q4

REPORT INFORMATION
  Report Type: Spontaneous
  Country: US (occurrence: US)
  Receive Date: 20201117
  Receipt Date: 20201117
  Transmission Date: 20210114
  Serious: Yes (Other)
  Sender: FDA-Public Use
  Company Number: None

PATIENT
  Age: 87 Year
  Sex: Female
  Weight: 50.4 kg

DRUGS (5)
  1. KRYSTEXXA [Suspect]
     Active Substance: PEGLOTICASE
     Indication: GOUTY TOPHUS
     Dosage: ?          OTHER FREQUENCY:Q2 WEEKS;?
     Route: 042
     Dates: start: 20201114, end: 20201114
  2. NS 250ML [Concomitant]
     Dates: start: 20201114, end: 20201114
  3. SOLUMEDROL 125MG [Concomitant]
     Dates: start: 20201114, end: 20201114
  4. KYSTEXXA 8MG [Concomitant]
     Dates: start: 20201114, end: 20201114
  5. BENADRYL 50MG [Concomitant]
     Dates: start: 20201114, end: 20201114

REACTIONS (4)
  - Infusion related reaction [None]
  - Hypotension [None]
  - Rash [None]
  - Pruritus [None]

NARRATIVE: CASE EVENT DATE: 20201114
